FAERS Safety Report 25650220 (Version 1)
Quarter: 2025Q3

REPORT INFORMATION
  Report Type: Spontaneous
  Country: AU (occurrence: AU)
  Receive Date: 20250806
  Receipt Date: 20250806
  Transmission Date: 20251020
  Serious: Yes (Hospitalization, Other)
  Sender: BAYER HEALTHCARE PHARMACEUTICALS INC.
  Company Number: AU-BAYER-2025A102852

PATIENT
  Age: 54 Year
  Sex: Female
  Weight: 49 kg

DRUGS (2)
  1. GADOBUTROL [Suspect]
     Active Substance: GADOBUTROL
     Indication: Scan
     Route: 042
     Dates: start: 20250731, end: 20250731
  2. FEXOFENADINE [Concomitant]
     Active Substance: FEXOFENADINE HYDROCHLORIDE
     Route: 048
     Dates: start: 20250731, end: 20250731

REACTIONS (1)
  - Somnolence [None]

NARRATIVE: CASE EVENT DATE: 20250731
